FAERS Safety Report 9969660 (Version 1)
Quarter: 2014Q1

REPORT INFORMATION
  Report Type: Spontaneous
  Country: US (occurrence: None)
  Receive Date: 20140130
  Receipt Date: 20140130
  Transmission Date: 20141002
  Serious: No
  Sender: FDA-Public Use
  Company Number: PHEH2013US021917

PATIENT
  Age: 84 Year
  Sex: Male

DRUGS (7)
  1. ARCAPTA (INDACATEROL) UNKNOWN [Suspect]
  2. ENALAPRIL (ENALAPRIL) [Concomitant]
  3. RANITIDINE (RANITIDINE) [Concomitant]
  4. OMEPRAZOLE (OMEPRAZOLE) [Concomitant]
  5. ASA (ACETYLSALICYLIC ACID) [Concomitant]
  6. VIT D (ERGOCALCIFEROL) [Concomitant]
  7. OXYCODONE (OXYCODONE) [Concomitant]

REACTIONS (1)
  - Device issue [None]
